FAERS Safety Report 13928404 (Version 1)
Quarter: 2017Q3

REPORT INFORMATION
  Report Type: Report from Study
  Country: US (occurrence: US)
  Receive Date: 20170901
  Receipt Date: 20170901
  Transmission Date: 20171127
  Serious: Yes (Other)
  Sender: FDA-Public Use
  Company Number: PHEH2017US027658

PATIENT
  Sex: Male

DRUGS (1)
  1. ENTRESTO [Suspect]
     Active Substance: SACUBITRIL\VALSARTAN
     Indication: CARDIAC FAILURE
     Dosage: 1 DF, QD (24 MG SACUBITRIL 26 MG VALSARTAN)
     Route: 048

REACTIONS (3)
  - Pneumonia [Unknown]
  - Underdose [Unknown]
  - Inappropriate schedule of drug administration [Unknown]
